FAERS Safety Report 8172416-1 (Version None)
Quarter: 2012Q1

REPORT INFORMATION
  Report Type: 
  Country: None (occurrence: None)
  Receive Date: 20120224
  Receipt Date: 20120224
  Transmission Date: 20120608
  Serious: No
  Sender: FDA-Public Use
  Company Number: None

PATIENT
  Sex: Female
  Weight: 61.4 kg

DRUGS (1)
  1. NEPHRONEX [Suspect]
     Indication: RENAL DISORDER
     Dosage: 1 OUNCE ONCE
     Route: 048
     Dates: start: 20120221

REACTIONS (4)
  - FLUSHING [None]
  - HEART RATE INCREASED [None]
  - EYE SWELLING [None]
  - RASH MACULAR [None]
